FAERS Safety Report 9519087 (Version 2)
Quarter: 2013Q3

REPORT INFORMATION
  Report Type: Report from Study
  Country: DE (occurrence: DE)
  Receive Date: 20130912
  Receipt Date: 20130912
  Transmission Date: 20140515
  Serious: Yes (Hospitalization, Other)
  Sender: FDA-Public Use
  Company Number: PHHO2010DE09731

PATIENT
  Age: 70 Year
  Sex: Male
  Weight: 124 kg

DRUGS (14)
  1. ALISKIREN [Suspect]
     Indication: CARDIOVASCULAR DISORDER
     Route: 048
     Dates: start: 20100330, end: 20100512
  2. THEOPHYLLIN [Concomitant]
  3. HCT [Concomitant]
  4. FUROSEMID [Concomitant]
  5. DIOVAN [Concomitant]
  6. AMLODIPIN [Concomitant]
  7. PANTOZOL [Concomitant]
     Dosage: UNK
     Dates: start: 20101207
  8. FORADIL [Concomitant]
  9. SIMVASTATIN [Concomitant]
  10. SALBUHEXAL [Concomitant]
  11. SANASTHMAX [Concomitant]
  12. INSULIN HUMALOG [Concomitant]
  13. PARACETAMOL [Concomitant]
     Indication: PAIN
  14. KALITRANS [Concomitant]

REACTIONS (14)
  - Stasis dermatitis [Recovered/Resolved]
  - Lymphoedema [Recovering/Resolving]
  - Erysipelas [Recovering/Resolving]
  - Staphylococcus test positive [Recovering/Resolving]
  - Streptobacillus test positive [Recovering/Resolving]
  - Swelling [Recovering/Resolving]
  - Erythema [Recovering/Resolving]
  - Pain in extremity [Recovered/Resolved]
  - Pyrexia [Recovering/Resolving]
  - Chills [Recovering/Resolving]
  - Concomitant disease progression [Recovering/Resolving]
  - Nausea [Recovered/Resolved]
  - Decreased appetite [Recovered/Resolved]
  - Weight decreased [Recovered/Resolved]
